FAERS Safety Report 7918489-X (Version None)
Quarter: 2011Q4

REPORT INFORMATION
  Report Type: 
  Country: None (occurrence: None)
  Receive Date: 20111116
  Receipt Date: 20110901
  Transmission Date: 20120403
  Serious: Yes (Other)
  Sender: FDA-Public Use
  Company Number: US-COVIDIEN/TYCO HEALTHCARE/MALLINCKRODT-T201101687

PATIENT

DRUGS (6)
  1. FENTANYL-100 [Suspect]
     Indication: PAIN
     Dosage: 50 UG/HR, 1 PATCH Q THREE DAYS
     Route: 062
     Dates: start: 20110807, end: 20110801
  2. WELLBUTRIN [Concomitant]
     Indication: DEPRESSION
     Dosage: 200 MG, QD
  3. FENTANYL-100 [Suspect]
     Dosage: 50 UG/HR APPLIED FOR 2 DAYS THEN REMOVED FOR 1 DAY
     Route: 062
     Dates: start: 20110801, end: 20110831
  4. XANAX [Concomitant]
     Indication: DEPRESSION
     Dosage: UNK, PRN
  5. PERCOCET [Concomitant]
     Indication: PAIN
     Dosage: UNK UNK, BID
     Dates: end: 20110829
  6. MORPHINE [Concomitant]
     Dosage: ONE DOSE IN THE HOSPITAL

REACTIONS (8)
  - FATIGUE [None]
  - DYSPNOEA [None]
  - ANXIETY [None]
  - HYPERHIDROSIS [None]
  - DRUG PRESCRIBING ERROR [None]
  - SPEECH DISORDER [None]
  - SOMNOLENCE [None]
  - NERVOUSNESS [None]
